FAERS Safety Report 7066628-8 (Version None)
Quarter: 2010Q4

REPORT INFORMATION
  Report Type: 
  Country: None (occurrence: None)
  Receive Date: 20101027
  Receipt Date: 20100819
  Transmission Date: 20110411
  Serious: No
  Sender: FDA-Public Use
  Company Number: US-WYE-H16269610

PATIENT
  Sex: Female
  Weight: 54.93 kg

DRUGS (3)
  1. PREMPRO [Suspect]
     Indication: MENOPAUSE
     Dosage: 0.625-5 MG DAILY
     Route: 048
     Dates: start: 20100401
  2. VITAMINS [Concomitant]
  3. ACETAMINOPHEN [Concomitant]

REACTIONS (4)
  - BREAST DISCOMFORT [None]
  - DYSMENORRHOEA [None]
  - FATIGUE [None]
  - POSTMENOPAUSAL HAEMORRHAGE [None]
